FAERS Safety Report 15034884 (Version 2)
Quarter: 2018Q4

REPORT INFORMATION
  Report Type: Spontaneous
  Country: US (occurrence: US)
  Receive Date: 20180620
  Receipt Date: 20181129
  Transmission Date: 20190204
  Serious: Yes (Death, Hospitalization, Other)
  Sender: FDA-Public Use
  Company Number: US-ASTRAZENECA-2018SE77876

PATIENT
  Age: 23119 Day
  Sex: Male
  Weight: 91.6 kg

DRUGS (4)
  1. BYDUREON [Suspect]
     Active Substance: EXENATIDE
     Indication: TYPE 2 DIABETES MELLITUS
     Route: 058
     Dates: start: 2014, end: 20180227
  2. ACTOS [Concomitant]
     Active Substance: PIOGLITAZONE HYDROCHLORIDE
     Indication: TYPE 2 DIABETES MELLITUS
     Dosage: 15 MG
     Route: 048
     Dates: start: 20161101
  3. BYDUREON [Suspect]
     Active Substance: EXENATIDE
     Indication: TYPE 2 DIABETES MELLITUS
     Dosage: SDT, 2 MG PER WEEK
     Route: 058
     Dates: start: 20130713, end: 2014
  4. TRESIBA [Concomitant]
     Active Substance: INSULIN DEGLUDEC
     Indication: TYPE 2 DIABETES MELLITUS
     Dosage: 18 UNITS
     Route: 058
     Dates: start: 20180424

REACTIONS (13)
  - Adenocarcinoma pancreas [Fatal]
  - Metastases to lymph nodes [Unknown]
  - Septic shock [Fatal]
  - Metastases to liver [Unknown]
  - Pneumonia klebsiella [Unknown]
  - Atrial fibrillation [Unknown]
  - Malignant neoplasm progression [Fatal]
  - Sepsis [Unknown]
  - Thrombocytopenia [Unknown]
  - Chronic kidney disease [Unknown]
  - Metastases to adrenals [Unknown]
  - Diabetic ketoacidosis [Fatal]
  - Neutropenia [Unknown]

NARRATIVE: CASE EVENT DATE: 20180607
